FAERS Safety Report 23820441 (Version 1)
Quarter: 2024Q2

REPORT INFORMATION
  Report Type: Spontaneous
  Country: US (occurrence: None)
  Receive Date: 20240503
  Receipt Date: 20240503
  Transmission Date: 20240716
  Serious: Yes (Other)
  Sender: FDA-Public Use
  Company Number: None

PATIENT
  Age: 44 Year
  Sex: Male
  Weight: 71.5 kg

DRUGS (2)
  1. TENECTEPLASE [Suspect]
     Active Substance: TENECTEPLASE
     Indication: Cerebrovascular accident
     Dosage: OTHER FREQUENCY : ONCE;?
     Route: 042
     Dates: start: 20240502, end: 20240502
  2. OMNIPAQUE [Concomitant]
     Active Substance: IOHEXOL
     Dates: start: 20240502, end: 20240502

REACTIONS (2)
  - Dyspnoea [None]
  - Dysphagia [None]

NARRATIVE: CASE EVENT DATE: 20240502
